FAERS Safety Report 20337185 (Version 1)
Quarter: 2022Q1

REPORT INFORMATION
  Report Type: Spontaneous
  Country: US (occurrence: US)
  Receive Date: 20220114
  Receipt Date: 20220114
  Transmission Date: 20220423
  Serious: No
  Sender: FDA-Public Use
  Company Number: US-SA-SAC20220105001063

PATIENT
  Age: 13 Year
  Sex: Male

DRUGS (1)
  1. SELENIUM SULFIDE [Suspect]
     Active Substance: SELENIUM SULFIDE

REACTIONS (7)
  - Acne [Unknown]
  - Erythema [Unknown]
  - Pain of skin [Unknown]
  - Skin odour abnormal [Unknown]
  - Product colour issue [Unknown]
  - Product physical issue [Unknown]
  - Product odour abnormal [Unknown]
